FAERS Safety Report 11248747 (Version 2)
Quarter: 2015Q3

REPORT INFORMATION
  Report Type: Spontaneous
  Country: US (occurrence: US)
  Receive Date: 20150708
  Receipt Date: 20150831
  Transmission Date: 20151125
  Serious: No
  Sender: FDA-Public Use
  Company Number: US-ELI_LILLY_AND_COMPANY-US201009004649

PATIENT
  Sex: Female

DRUGS (5)
  1. GABAPENTIN. [Concomitant]
     Active Substance: GABAPENTIN
  2. PROZAC [Suspect]
     Active Substance: FLUOXETINE HYDROCHLORIDE
     Indication: DEPRESSION
     Dosage: 3 D/F, DAILY (1/D)
  3. PROZAC [Suspect]
     Active Substance: FLUOXETINE HYDROCHLORIDE
  4. CYMBALTA [Suspect]
     Active Substance: DULOXETINE HYDROCHLORIDE
     Indication: DEPRESSION
  5. XANAX [Concomitant]
     Active Substance: ALPRAZOLAM

REACTIONS (8)
  - Hypoaesthesia [Unknown]
  - Confusional state [Unknown]
  - Dizziness [Not Recovered/Not Resolved]
  - Memory impairment [Unknown]
  - Blood cholesterol increased [Unknown]
  - Sleep disorder [Unknown]
  - Neuropathy peripheral [Unknown]
  - Fall [Unknown]
